FAERS Safety Report 15517281 (Version 1)
Quarter: 2018Q4

REPORT INFORMATION
  Report Type: Spontaneous
  Country: PL (occurrence: PL)
  Receive Date: 20181017
  Receipt Date: 20181017
  Transmission Date: 20190205
  Serious: Yes (Hospitalization, Other)
  Sender: FDA-Public Use
  Company Number: PL-SHIRE-PL201837589

PATIENT

DRUGS (6)
  1. AZATHIOPRINE. [Suspect]
     Active Substance: AZATHIOPRINE
     Indication: COLITIS ULCERATIVE
     Route: 065
  2. 476 (MESALAZINE/MESALAMINE) [Suspect]
     Active Substance: MESALAMINE
     Indication: COLITIS ULCERATIVE
     Dosage: UNK
     Route: 065
  3. DESLORATADINE. [Concomitant]
     Active Substance: DESLORATADINE
     Indication: DERMATITIS ATOPIC
  4. DESLORATADINE. [Concomitant]
     Active Substance: DESLORATADINE
     Indication: RHINITIS ALLERGIC
  5. FLUTICASONE. [Concomitant]
     Active Substance: FLUTICASONE
     Indication: ASTHMA
     Dosage: UNK
     Route: 045
  6. BUDESONIDE. [Concomitant]
     Active Substance: BUDESONIDE
     Indication: ASTHMA

REACTIONS (2)
  - Interstitial lung disease [Recovered/Resolved]
  - General physical health deterioration [Recovering/Resolving]
